FAERS Safety Report 10196317 (Version 1)
Quarter: 2014Q2

REPORT INFORMATION
  Report Type: Spontaneous
  Country: US (occurrence: US)
  Receive Date: 20140527
  Receipt Date: 20140527
  Transmission Date: 20141212
  Serious: No
  Sender: FDA-Public Use
  Company Number: US-MALLINCKRODT-T201401549

PATIENT
  Sex: Female

DRUGS (4)
  1. TOFRANIL [Suspect]
     Indication: PANIC ATTACK
     Dosage: 50 MG, 3 TABS QD
     Route: 048
     Dates: start: 2013
  2. TOFRANIL [Suspect]
     Dosage: UNK
     Route: 048
     Dates: start: 1996
  3. TOFRANIL [Suspect]
     Dosage: 50 MG, 1 X DAY
     Route: 065
  4. SYNTHYROID [Concomitant]
     Dosage: 0.88 UNK, QD

REACTIONS (5)
  - Feeling abnormal [Not Recovered/Not Resolved]
  - Intentional product misuse [Unknown]
  - Drug ineffective [Not Recovered/Not Resolved]
  - Drug effect decreased [Unknown]
  - Off label use [Not Recovered/Not Resolved]
